FAERS Safety Report 7916205-9 (Version None)
Quarter: 2011Q4

REPORT INFORMATION
  Report Type: 
  Country: None (occurrence: None)
  Receive Date: 20111116
  Receipt Date: 20111110
  Transmission Date: 20120403
  Serious: No
  Sender: FDA-Public Use
  Company Number: US-BIOGENIDEC-2011BI019409

PATIENT
  Sex: Female

DRUGS (2)
  1. TYSABRI [Suspect]
     Indication: MULTIPLE SCLEROSIS
     Route: 042
     Dates: start: 20100112
  2. TYSABRI [Suspect]
     Route: 042
     Dates: start: 20090514, end: 20090514

REACTIONS (2)
  - PAIN IN EXTREMITY [None]
  - DRUG EFFECT DECREASED [None]
